FAERS Safety Report 5079570-9 (Version None)
Quarter: 2006Q3

REPORT INFORMATION
  Report Type: 
  Country: None (occurrence: None)
  Receive Date: 20060811
  Receipt Date: 20060811
  Transmission Date: 20061208
  Serious: Yes (Life-Threatening)
  Sender: FDA-Public Use
  Company Number: None

PATIENT
  Age: 60 Year
  Sex: Male
  Weight: 103.8737 kg

DRUGS (2)
  1. ENBREL [Suspect]
     Indication: PSORIASIS
     Dosage: 50MG    2X/WK     SQ
     Route: 058
     Dates: start: 20051101, end: 20060501
  2. RAPTIVA [Concomitant]

REACTIONS (2)
  - BASAL CELL CARCINOMA [None]
  - LEIOMYOSARCOMA [None]
